FAERS Safety Report 21084779 (Version 2)
Quarter: 2022Q3

REPORT INFORMATION
  Report Type: Spontaneous
  Country: CA (occurrence: CA)
  Receive Date: 20220714
  Receipt Date: 20220714
  Transmission Date: 20221027
  Serious: Yes (Other)
  Sender: FDA-Public Use
  Company Number: CA-HLS-202201285

PATIENT
  Sex: Female

DRUGS (17)
  1. CLOZAPINE [Suspect]
     Active Substance: CLOZAPINE
     Indication: Product used for unknown indication
     Dosage: 1.0 DOSAGE FORMS EVER 1 DAYS; ?3.0 DOSAGE FORMS 1 EVERY 24 HOURS
     Route: 065
  2. UNSPECIFIED INGREDIENT [Suspect]
     Active Substance: UNSPECIFIED INGREDIENT
     Indication: Insomnia
     Dosage: UNKNOWN DOSE EVERY 1 DAYS
     Route: 065
  3. UNSPECIFIED INGREDIENT [Suspect]
     Active Substance: UNSPECIFIED INGREDIENT
     Indication: Product used for unknown indication
     Dosage: UNKNOWN
     Route: 065
  4. REXULTI [Suspect]
     Active Substance: BREXPIPRAZOLE
     Indication: Product used for unknown indication
     Dosage: UNKNOWN
     Route: 065
  5. UNSPECIFIED INGREDIENT [Suspect]
     Active Substance: UNSPECIFIED INGREDIENT
     Indication: Product used for unknown indication
     Dosage: 150.0 MILLIGRAM 1 EVERY 12 HOURS
     Route: 065
  6. UNSPECIFIED INGREDIENT [Suspect]
     Active Substance: UNSPECIFIED INGREDIENT
     Indication: Mood altered
     Dosage: UNKNOWN
     Route: 065
  7. UNSPECIFIED INGREDIENT [Suspect]
     Active Substance: UNSPECIFIED INGREDIENT
     Indication: Product used for unknown indication
     Dosage: UNKNOWN
     Route: 065
  8. UNSPECIFIED INGREDIENT [Suspect]
     Active Substance: UNSPECIFIED INGREDIENT
     Indication: Product used for unknown indication
     Dosage: UNKNOWN
     Route: 065
  9. UNSPECIFIED INGREDIENT [Suspect]
     Active Substance: UNSPECIFIED INGREDIENT
     Indication: Product used for unknown indication
     Dosage: UNKNOWN
     Route: 067
  10. UNSPECIFIED INGREDIENT [Suspect]
     Active Substance: UNSPECIFIED INGREDIENT
     Indication: Product used for unknown indication
     Dosage: UNKNOWN
     Route: 065
  11. UNSPECIFIED INGREDIENT [Suspect]
     Active Substance: UNSPECIFIED INGREDIENT
     Indication: Rash
     Dosage: UNKNOWN
     Route: 065
  12. UNSPECIFIED INGREDIENT [Suspect]
     Active Substance: UNSPECIFIED INGREDIENT
     Indication: Product used for unknown indication
     Dosage: UNKNOWN
     Route: 065
  13. UNSPECIFIED INGREDIENT [Suspect]
     Active Substance: UNSPECIFIED INGREDIENT
     Indication: Product used for unknown indication
     Dosage: UNKNOWN
     Route: 065
  14. UNSPECIFIED INGREDIENT [Suspect]
     Active Substance: UNSPECIFIED INGREDIENT
     Indication: Product used for unknown indication
     Dosage: 1.0 DOSAGE FORMS EVERY 1 DAYS
     Route: 065
  15. UNSPECIFIED INGREDIENT [Suspect]
     Active Substance: UNSPECIFIED INGREDIENT
     Indication: Abdominal discomfort
     Dosage: UNKNOWN
     Route: 048
  16. UNSPECIFIED INGREDIENT [Suspect]
     Active Substance: UNSPECIFIED INGREDIENT
     Indication: Pain
     Dosage: 2.0 DOSAGE FORMS 1 EVERY 12 HOURS
     Route: 065
  17. UNSPECIFIED INGREDIENT [Suspect]
     Active Substance: UNSPECIFIED INGREDIENT
     Indication: Pyrexia
     Dosage: 2.0 DOSAGE FORMS 1 EVERY 12 HOURS
     Route: 065

REACTIONS (5)
  - Drug interaction [Unknown]
  - Drug level increased [Unknown]
  - Electrocardiogram QT prolonged [Unknown]
  - Product use issue [Unknown]
  - Schizoaffective disorder [Unknown]
